FAERS Safety Report 20492977 (Version 1)
Quarter: 2022Q1

REPORT INFORMATION
  Report Type: Spontaneous
  Country: US (occurrence: US)
  Receive Date: 20220219
  Receipt Date: 20220219
  Transmission Date: 20220423
  Serious: Yes (Other)
  Sender: FDA-Public Use
  Company Number: US-MYLANLABS-2022M1013701

PATIENT
  Age: 12 Year
  Sex: Female

DRUGS (1)
  1. BUSULFAN [Suspect]
     Active Substance: BUSULFAN
     Indication: Stem cell transplant
     Dosage: UNK

REACTIONS (3)
  - Bronchiolitis obliterans syndrome [Unknown]
  - Venoocclusive liver disease [Unknown]
  - Interstitial lung disease [Unknown]
